FAERS Safety Report 6042650-5 (Version None)
Quarter: 2009Q1

REPORT INFORMATION
  Report Type: 
  Country: None (occurrence: None)
  Receive Date: 20090119
  Receipt Date: 20090108
  Transmission Date: 20090719
  Serious: Yes (Other)
  Sender: FDA-Public Use
  Company Number: PHHY2008DE24979

PATIENT
  Sex: Male
  Weight: 83 kg

DRUGS (9)
  1. EXELON [Suspect]
     Indication: DEMENTIA
     Dosage: 4.6 MG/24 HOURS
     Route: 062
     Dates: start: 20080314
  2. L-DOPA [Concomitant]
     Indication: PARKINSON'S DISEASE
  3. STALEVO 100 [Concomitant]
     Indication: PARKINSON'S DISEASE
     Dosage: 300 MG/DAY
     Route: 048
     Dates: start: 20080327
  4. LEPONEX [Concomitant]
     Indication: HALLUCINATION
     Dosage: 0.25 TBL.
     Route: 048
     Dates: start: 20081027
  5. DOCITON [Concomitant]
     Indication: TREMOR
     Dosage: 100 MG/DAY
     Route: 048
     Dates: start: 20080301
  6. LEVOTHYROXINE SODIUM [Concomitant]
     Indication: HYPOTHYROIDISM
     Dosage: 50 MG/DAY
     Route: 048
     Dates: start: 20080301
  7. CIPRALEX [Concomitant]
     Indication: DEPRESSION
     Dosage: UNK
     Dates: start: 20081013
  8. ISICOM [Concomitant]
     Indication: PARKINSON'S DISEASE
     Dosage: 400 MG DAILY
     Route: 048
     Dates: start: 20081016
  9. PROSTAGUTT [Concomitant]
     Indication: PROSTATIC ADENOMA
     Dosage: UNK
     Route: 048
     Dates: start: 20080601

REACTIONS (4)
  - BLADDER CATHETERISATION [None]
  - NEUROGENIC BLADDER [None]
  - POLLAKIURIA [None]
  - URINARY RETENTION [None]
